FAERS Safety Report 9087997 (Version 1)
Quarter: 2013Q1

REPORT INFORMATION
  Report Type: Report from Study
  Country: US (occurrence: US)
  Receive Date: 20130130
  Receipt Date: 20130130
  Transmission Date: 20140127
  Serious: No
  Sender: FDA-Public Use
  Company Number: US-ABBOTT-12P-163-0983826-00

PATIENT
  Age: 48 Year
  Sex: Male

DRUGS (9)
  1. HUMIRA [Suspect]
     Indication: ANKYLOSING SPONDYLITIS
     Route: 058
     Dates: start: 20120828
  2. NASOCORT [Concomitant]
     Indication: HYPERSENSITIVITY
  3. CLARITIN [Concomitant]
     Indication: HYPERSENSITIVITY
  4. PRILOSEC [Concomitant]
     Indication: GASTROOESOPHAGEAL REFLUX DISEASE
  5. CYMBALTA [Concomitant]
     Indication: DEPRESSION
  6. ULTRAM [Concomitant]
     Indication: PAIN
  7. TYLENOL (NON-ABBOTT) [Concomitant]
     Indication: PAIN
  8. ASPIRIN [Concomitant]
     Indication: PROPHYLAXIS
  9. FISH OIL [Concomitant]
     Indication: MEDICAL DIET

REACTIONS (3)
  - Diarrhoea [Not Recovered/Not Resolved]
  - Abdominal discomfort [Not Recovered/Not Resolved]
  - Nausea [Not Recovered/Not Resolved]
